FAERS Safety Report 8066322-0 (Version None)
Quarter: 2012Q1

REPORT INFORMATION
  Report Type: 
  Country: None (occurrence: None)
  Receive Date: 20120117
  Receipt Date: 20120102
  Transmission Date: 20120608
  Serious: Yes (Hospitalization)
  Sender: FDA-Public Use
  Company Number: 2012-000002

PATIENT
  Age: 78 Year
  Sex: Male

DRUGS (8)
  1. ATORVASTATIN CALCIUM [Concomitant]
  2. ACTONEL [Suspect]
     Dosage: 35 MG ONCE WEEKLY, ORAL
     Route: 048
  3. PREVISCAN /00789001/ (FLUINDIONE) 20MG [Suspect]
     Indication: ATRIAL FIBRILLATION
     Dosage: 20 MG DAILY, ORAL
     Route: 048
     Dates: end: 20110903
  4. ARICEPT [Suspect]
     Indication: DEMENTIA ALZHEIMER'S TYPE
     Dosage: 10 MG, DAILY, ORAL
     Route: 048
  5. TRANDOLAPRIL [Concomitant]
  6. CITALOPRAM HYDROBROMIDE [Suspect]
     Dosage: 0.5 MG, DAILY, ORAL
     Route: 048
  7. DILTIAZEM HYDROCHLORIDE [Concomitant]
  8. DENSICAL (CALCIUM CARBONATE) [Concomitant]

REACTIONS (16)
  - GASTROINTESTINAL HAEMORRHAGE [None]
  - MITRAL VALVE INCOMPETENCE [None]
  - PHLEBITIS SUPERFICIAL [None]
  - DUODENAL ULCER [None]
  - HAEMATEMESIS [None]
  - TACHYCARDIA [None]
  - HELICOBACTER GASTRITIS [None]
  - HYPOTENSION [None]
  - INTERNATIONAL NORMALISED RATIO INCREASED [None]
  - ANAEMIA [None]
  - AORTIC VALVE DISEASE [None]
  - DRUG EFFECT INCREASED [None]
  - MALAISE [None]
  - HAEMOGLOBIN DECREASED [None]
  - DILATATION ATRIAL [None]
  - HAEMODYNAMIC REBOUND [None]
